FAERS Safety Report 4634766-2 (Version None)
Quarter: 2005Q2

REPORT INFORMATION
  Report Type: 
  Country: None (occurrence: None)
  Receive Date: 20050412
  Receipt Date: 20050412
  Transmission Date: 20051028
  Serious: Yes (Disabling)
  Sender: FDA-Public Use
  Company Number: None

PATIENT
  Age: 66 Year
  Sex: Male
  Weight: 64.4108 kg

DRUGS (3)
  1. ZOCOR [Suspect]
     Indication: BLOOD CHOLESTEROL INCREASED
     Dosage: 1-40MG   DAILY   ORAL
     Route: 048
     Dates: start: 20050121, end: 20050128
  2. FOLBIC [Concomitant]
  3. AGGRENOX [Concomitant]

REACTIONS (5)
  - DECREASED ACTIVITY [None]
  - DYSSTASIA [None]
  - MUSCLE INJURY [None]
  - MUSCLE SPASMS [None]
  - PAIN IN EXTREMITY [None]
